FAERS Safety Report 16129570 (Version 1)
Quarter: 2019Q1

REPORT INFORMATION
  Report Type: Spontaneous
  Country: US (occurrence: US)
  Receive Date: 20190328
  Receipt Date: 20190328
  Transmission Date: 20190418
  Serious: No
  Sender: FDA-Public Use
  Company Number: US-TEVA-2019-US-1022018

PATIENT
  Sex: Male

DRUGS (1)
  1. DONEPEZIL 10MG [Suspect]
     Active Substance: DONEPEZIL
     Indication: AMNESIA
     Dosage: 5 MILLIGRAM DAILY;
     Route: 065
     Dates: start: 20190225

REACTIONS (3)
  - Wrong technique in product usage process [Unknown]
  - Memory impairment [Recovered/Resolved]
  - Dizziness [Recovered/Resolved]

NARRATIVE: CASE EVENT DATE: 20190225
